FAERS Safety Report 8381892-0 (Version None)
Quarter: 2012Q2

REPORT INFORMATION
  Report Type: 
  Country: None (occurrence: None)
  Receive Date: 20120522
  Receipt Date: 20120522
  Transmission Date: 20120825
  Serious: Yes (Hospitalization)
  Sender: FDA-Public Use
  Company Number: None

PATIENT
  Age: 48 Year
  Sex: Female
  Weight: 78.2 kg

DRUGS (11)
  1. WARFARIN SODIUM [Suspect]
     Indication: HEART VALVE REPLACEMENT
     Dosage: 10 MG DAILY PO
     Route: 048
  2. CHOLESTYRAMINE [Concomitant]
  3. FIORICET [Concomitant]
  4. METOLAZONE [Concomitant]
  5. LORAZEPAM [Concomitant]
  6. ASPIRIN [Suspect]
     Indication: HEART VALVE REPLACEMENT
     Dosage: 1 PILL UP TO 9 PILLS/DAY- UP TO 9 PILLS/DAY PO
     Route: 048
  7. METOPROLOL [Concomitant]
  8. LASIX [Concomitant]
  9. ZOFRAN [Concomitant]
  10. CELEXA [Concomitant]
  11. KEPPRA [Concomitant]

REACTIONS (9)
  - MELAENA [None]
  - FATIGUE [None]
  - GASTRIC ULCER [None]
  - FALL [None]
  - ABDOMINAL PAIN [None]
  - INTERNATIONAL NORMALISED RATIO DECREASED [None]
  - DIZZINESS [None]
  - INTERNATIONAL NORMALISED RATIO INCREASED [None]
  - ANAEMIA [None]
